FAERS Safety Report 16029528 (Version 1)
Quarter: 2019Q1

REPORT INFORMATION
  Report Type: Spontaneous
  Country: US (occurrence: US)
  Receive Date: 20190304
  Receipt Date: 20190304
  Transmission Date: 20190418
  Serious: No
  Sender: FDA-Public Use
  Company Number: US-IMPAX LABORATORIES, LLC-2018-IPXL-01553

PATIENT
  Age: 75 Year
  Sex: Female

DRUGS (2)
  1. RYTARY [Suspect]
     Active Substance: CARBIDOPA\LEVODOPA
     Indication: PRODUCT USED FOR UNKNOWN INDICATION
     Dosage: 23.75/95 MG, TWO CAPSULES IN THE MORNING DOSE, UNK
     Route: 065
     Dates: start: 201804, end: 2018
  2. RYTARY [Suspect]
     Active Substance: CARBIDOPA\LEVODOPA
     Dosage: 23.75/95 MG, THREE CAPSULES IN THE MORNING DOSE, UNK
     Route: 065
     Dates: start: 2018

REACTIONS (5)
  - Drug effect incomplete [Unknown]
  - Therapeutic response shortened [Unknown]
  - Musculoskeletal stiffness [Unknown]
  - Drug effect delayed [Unknown]
  - Drug effect variable [Unknown]

NARRATIVE: CASE EVENT DATE: 2018
